FAERS Safety Report 9652109 (Version 1)
Quarter: 2013Q4

REPORT INFORMATION
  Report Type: Spontaneous
  Country: US (occurrence: None)
  Receive Date: 20131028
  Receipt Date: 20131028
  Transmission Date: 20140711
  Serious: Yes (Hospitalization)
  Sender: FDA-Public Use
  Company Number: None

PATIENT
  Age: 66 Year
  Sex: Male
  Weight: 84.1 kg

DRUGS (1)
  1. DALTEPARIN [Suspect]
     Indication: DEEP VEIN THROMBOSIS
     Dates: start: 20130227, end: 20130308

REACTIONS (1)
  - Gastric haemorrhage [None]
